FAERS Safety Report 16638438 (Version 1)
Quarter: 2019Q3

REPORT INFORMATION
  Report Type: Spontaneous
  Country: US (occurrence: US)
  Receive Date: 20190614
  Receipt Date: 20190614
  Transmission Date: 20191004
  Serious: No
  Sender: FDA-Public Use
  Company Number: None

PATIENT
  Age: 63 Year
  Sex: Male
  Weight: 113.4 kg

DRUGS (1)
  1. DULOXETINE  60MG [Suspect]
     Active Substance: DULOXETINE
     Route: 048
     Dates: start: 20190612

REACTIONS (4)
  - Cognitive disorder [None]
  - Neck pain [None]
  - Confusional state [None]
  - Product complaint [None]

NARRATIVE: CASE EVENT DATE: 20190612
